FAERS Safety Report 17542147 (Version 1)
Quarter: 2020Q1

REPORT INFORMATION
  Report Type: Spontaneous
  Country: US (occurrence: US)
  Receive Date: 20200313
  Receipt Date: 20200313
  Transmission Date: 20200409
  Serious: No
  Sender: FDA-Public Use
  Company Number: US-FDC LIMITED-2019RIS00346

PATIENT
  Sex: Female

DRUGS (1)
  1. OFLOXACIN. [Suspect]
     Active Substance: OFLOXACIN
     Indication: CONJUNCTIVITIS
     Dosage: 1 GTT, 6X/DAY ^DROPS IN AT 12:00, 4:00 AND 8:00^
     Route: 047

REACTIONS (5)
  - Fat tissue increased [Unknown]
  - Periorbital oedema [Recovering/Resolving]
  - Hypersensitivity [Recovering/Resolving]
  - Foreign body sensation in eyes [Unknown]
  - Face oedema [Recovering/Resolving]
